FAERS Safety Report 8958702 (Version 1)
Quarter: 2012Q4

REPORT INFORMATION
  Report Type: 
  Country: RU (occurrence: RU)
  Receive Date: 20121212
  Receipt Date: 20121212
  Transmission Date: 20130627
  Serious: Yes (Other)
  Sender: FDA-Public Use
  Company Number: RU-ASTRAZENECA-2012SE91762

PATIENT
  Age: 930 Month
  Sex: Male
  Weight: 50 kg

DRUGS (2)
  1. SYMBICORT TURBUHALER [Suspect]
     Indication: ASTHMA
     Dosage: 160/4.5 MCG, 1 DF TWO TIMES A DAY
     Route: 055
     Dates: start: 2007
  2. VERAPAMIL [Concomitant]
     Indication: ESSENTIAL HYPERTENSION
     Route: 048

REACTIONS (1)
  - Epilepsy [Recovered/Resolved]
